FAERS Safety Report 6796270-5 (Version None)
Quarter: 2010Q2

REPORT INFORMATION
  Report Type: 
  Country: None (occurrence: None)
  Receive Date: 20100625
  Receipt Date: 20100616
  Transmission Date: 20101027
  Serious: Yes (Other)
  Sender: FDA-Public Use
  Company Number: CA-MERCK-1006USA02584

PATIENT
  Age: 33 Year
  Sex: Female
  Weight: 79 kg

DRUGS (5)
  1. FOSAMAX [Suspect]
     Route: 048
  2. CALCIUM CARBONATE [Concomitant]
     Route: 065
  3. DEPO-PROVERA [Suspect]
     Route: 030
  4. FLONASE [Suspect]
     Route: 055
  5. VITAMIN D (UNSPECIFIED) [Concomitant]
     Route: 065

REACTIONS (1)
  - OSTEOPOROSIS [None]
